FAERS Safety Report 4522692-9 (Version None)
Quarter: 2004Q4

REPORT INFORMATION
  Report Type: 
  Country: None (occurrence: None)
  Receive Date: 20041207
  Receipt Date: 20041122
  Transmission Date: 20050328
  Serious: Yes (Hospitalization)
  Sender: FDA-Public Use
  Company Number: FR_041105272

PATIENT
  Age: 65 Year
  Sex: Female

DRUGS (5)
  1. DOBUTREX [Suspect]
     Indication: CARDIOVASCULAR EVALUATION
     Dates: start: 20041015, end: 20041015
  2. ATACAND [Concomitant]
  3. MEDIATOR (BENFLUOREX HYDROCHLORIDE) [Concomitant]
  4. LASIX [Concomitant]
  5. SERMION (NICERGOLINE) [Concomitant]

REACTIONS (3)
  - ATRIAL FIBRILLATION [None]
  - CARDIAC PROCEDURE COMPLICATION [None]
  - SHOCK [None]
